FAERS Safety Report 8812885 (Version 2)
Quarter: 2015Q2

REPORT INFORMATION
  Report Type: Report from Study
  Country: US (occurrence: US)
  Receive Date: 20120927
  Receipt Date: 20150629
  Transmission Date: 20150821
  Serious: Yes (Death)
  Sender: FDA-Public Use
  Company Number: US-ROCHE-1129587

PATIENT
  Sex: Female

DRUGS (5)
  1. HERCEPTIN [Suspect]
     Active Substance: TRASTUZUMAB
     Indication: UTERINE CANCER
     Dosage: LOADING DOSE
     Route: 042
     Dates: start: 20070103
  2. PYROXIN [Concomitant]
  3. HERCEPTIN [Suspect]
     Active Substance: TRASTUZUMAB
     Dosage: MAINTAINANCE DOSE
     Route: 042
     Dates: start: 20070110
  4. SULFA-TRIMETHOPRIM [Concomitant]
  5. TYLENOL [Concomitant]
     Active Substance: ACETAMINOPHEN

REACTIONS (10)
  - Back pain [Unknown]
  - Blood urine [Unknown]
  - Death [Fatal]
  - Oedema peripheral [Unknown]
  - Musculoskeletal discomfort [Unknown]
  - Chromaturia [Unknown]
  - Cough [Unknown]
  - Micturition urgency [Unknown]
  - Off label use [Unknown]
  - Musculoskeletal pain [Unknown]
